FAERS Safety Report 5930521-1 (Version None)
Quarter: 2008Q4

REPORT INFORMATION
  Report Type: 
  Country: None (occurrence: None)
  Receive Date: 20081026
  Receipt Date: 20081017
  Transmission Date: 20090506
  Serious: Yes (Other)
  Sender: FDA-Public Use
  Company Number: PHHY2008NZ22855

PATIENT
  Sex: Male

DRUGS (1)
  1. EXELON [Suspect]
     Indication: DEMENTIA ALZHEIMER'S TYPE
     Dosage: 9.5 MG PATCH, UNK
     Route: 062
     Dates: start: 20080601, end: 20080818

REACTIONS (3)
  - ENURESIS [None]
  - FALL [None]
  - FATIGUE [None]
